FAERS Safety Report 16513743 (Version 1)
Quarter: 2019Q3

REPORT INFORMATION
  Report Type: Spontaneous
  Country: SE (occurrence: SE)
  Receive Date: 20190702
  Receipt Date: 20190702
  Transmission Date: 20191004
  Serious: Yes (Hospitalization)
  Sender: FDA-Public Use
  Company Number: SE-PFIZER INC-2019274999

PATIENT
  Sex: Female

DRUGS (8)
  1. NOZINAN [LEVOMEPROMAZINE MALEATE] [Suspect]
     Active Substance: LEVOMEPROMAZINE MALEATE
     Dosage: 125 MG, UNK
     Dates: start: 20190304, end: 20190304
  2. STILNOCT [Suspect]
     Active Substance: ZOLPIDEM TARTRATE
     Dosage: 40 MG, UNK
     Dates: start: 20190304, end: 20190304
  3. PROMETHAZINE [Suspect]
     Active Substance: PROMETHAZINE HYDROCHLORIDE
     Dosage: 750 MG, UNK
     Route: 048
     Dates: start: 20190304, end: 20190304
  4. QUETIAPINE. [Suspect]
     Active Substance: QUETIAPINE
     Dosage: 2000 MG, UNK
     Dates: start: 20190304, end: 20190304
  5. LERGIGAN [PROMETHAZINE HYDROCHLORIDE] [Suspect]
     Active Substance: PROMETHAZINE HYDROCHLORIDE
     Dosage: 125 MG, UNK
     Dates: start: 20190304, end: 20190304
  6. HYDROXYZINE [Suspect]
     Active Substance: HYDROXYZINE HYDROCHLORIDE
     Dosage: 625 MG, UNK
     Dates: start: 20190304, end: 20190304
  7. MORPHINE SULFATE. [Suspect]
     Active Substance: MORPHINE SULFATE
     Dosage: 30 MG, UNK
     Dates: start: 20190304, end: 20190304
  8. ALIMEMAZINE [Suspect]
     Active Substance: TRIMEPRAZINE
     Dosage: 100 MG, UNK
     Dates: start: 20190304, end: 20190304

REACTIONS (3)
  - Fatigue [Unknown]
  - Intentional self-injury [Unknown]
  - Intentional overdose [Unknown]

NARRATIVE: CASE EVENT DATE: 20190304
